FAERS Safety Report 9472382 (Version 1)
Quarter: 2013Q3

REPORT INFORMATION
  Report Type: Spontaneous
  Country: FR (occurrence: FR)
  Receive Date: 20130823
  Receipt Date: 20130823
  Transmission Date: 20140515
  Serious: Yes (Hospitalization, Other)
  Sender: FDA-Public Use
  Company Number: FR-JNJFOC-20130810172

PATIENT
  Age: 64 Year
  Sex: Female

DRUGS (4)
  1. TRAMADOL HYDROCHLORIDE [Suspect]
     Indication: RESTLESS LEGS SYNDROME
     Route: 065
  2. BUPROPION [Suspect]
     Indication: DEPRESSION
     Route: 065
  3. ROPINIROLE [Suspect]
     Indication: PRODUCT USED FOR UNKNOWN INDICATION
     Route: 065
  4. FLUOXETINE [Suspect]
     Indication: DEPRESSION
     Route: 065

REACTIONS (2)
  - Restless legs syndrome [Unknown]
  - Major depression [Recovered/Resolved]
